FAERS Safety Report 4979127-1 (Version None)
Quarter: 2006Q2

REPORT INFORMATION
  Report Type: 
  Country: None (occurrence: None)
  Receive Date: 20060421
  Receipt Date: 20060411
  Transmission Date: 20061013
  Serious: Yes (Death, Hospitalization, Disabling)
  Sender: FDA-Public Use
  Company Number: JP-JNJFOC-20060401530

PATIENT
  Age: 32 Year
  Sex: Female

DRUGS (5)
  1. CRAVIT [Suspect]
     Indication: TONSILLITIS
     Route: 048
     Dates: start: 20060306, end: 20060320
  2. GASTER [Concomitant]
  3. ALESION [Concomitant]
     Route: 048
  4. SELBEX [Concomitant]
     Route: 048
  5. PREDONIN [Concomitant]
     Route: 065

REACTIONS (5)
  - CONVULSION [None]
  - DEATH [None]
  - DEPRESSED LEVEL OF CONSCIOUSNESS [None]
  - RENAL FAILURE [None]
  - RHABDOMYOLYSIS [None]
